FAERS Safety Report 6515799-8 (Version None)
Quarter: 2009Q4

REPORT INFORMATION
  Report Type: 
  Country: None (occurrence: None)
  Receive Date: 20091223
  Receipt Date: 20091217
  Transmission Date: 20100525
  Serious: Yes (Other)
  Sender: FDA-Public Use
  Company Number: PHHY2009DE56651

PATIENT
  Sex: Female

DRUGS (3)
  1. CGS 20267 T30748+ [Suspect]
     Indication: BREAST CANCER
     Dosage: 2.5 MG DAILY
     Route: 048
     Dates: start: 20070515, end: 20080930
  2. RYTMONORM [Concomitant]
     Dosage: UNK
     Dates: start: 19800101
  3. INAL HEXAL [Concomitant]
     Dosage: UNK
     Dates: start: 19900101

REACTIONS (1)
  - BURNOUT SYNDROME [None]
